FAERS Safety Report 7211527-1 (Version None)
Quarter: 2010Q4

REPORT INFORMATION
  Report Type: 
  Country: None (occurrence: None)
  Receive Date: 20101228
  Receipt Date: 20101214
  Transmission Date: 20110411
  Serious: Yes (Hospitalization)
  Sender: FDA-Public Use
  Company Number: 016791

PATIENT
  Sex: Female
  Weight: 52.8 kg

DRUGS (10)
  1. CIMZIA [Suspect]
     Indication: RHEUMATOID ARTHRITIS
     Dosage: SEE IMAGE: SUBCUTANEOUS
     Route: 058
     Dates: start: 20091007, end: 20091101
  2. CIMZIA [Suspect]
     Indication: RHEUMATOID ARTHRITIS
     Dosage: SEE IMAGE: SUBCUTANEOUS
     Route: 058
     Dates: start: 20091101, end: 20100408
  3. CIMZIA [Suspect]
     Indication: RHEUMATOID ARTHRITIS
     Dosage: SEE IMAGE: SUBCUTANEOUS
     Route: 058
     Dates: start: 20100421, end: 20100715
  4. METHOTREXATE [Suspect]
     Indication: RHEUMATOID ARTHRITIS
     Dosage: 6 MG (4MG -2MG)/WEEK ORAL
     Route: 048
     Dates: start: 20090613
  5. PREDNISOLONE [Suspect]
     Indication: RHEUMATOID ARTHRITIS
     Dosage: 2.5 MG ORAL
     Route: 048
     Dates: start: 19981218
  6. FELBINAC [Concomitant]
  7. ETODOLAC [Concomitant]
  8. SOFALCONE [Concomitant]
  9. ISONIAZID [Concomitant]
  10. KETOPROFEN [Concomitant]

REACTIONS (20)
  - ALTERED STATE OF CONSCIOUSNESS [None]
  - BRAIN CONTUSION [None]
  - CEREBELLAR ATROPHY [None]
  - CEREBRAL HAEMATOMA [None]
  - CEREBRAL ISCHAEMIA [None]
  - CEREBROVASCULAR SPASM [None]
  - DISTURBANCE IN ATTENTION [None]
  - DIZZINESS [None]
  - HEADACHE [None]
  - HYDROCEPHALUS [None]
  - HYPERTENSION [None]
  - INTRACRANIAL ANEURYSM [None]
  - MEMORY IMPAIRMENT [None]
  - MENINGITIS [None]
  - MUSCULOSKELETAL STIFFNESS [None]
  - PERIARTHRITIS [None]
  - QUADRIPLEGIA [None]
  - SUBARACHNOID HAEMORRHAGE [None]
  - VASOSPASM [None]
  - VOMITING [None]
